FAERS Safety Report 4290439-X (Version None)
Quarter: 2004Q1

REPORT INFORMATION
  Report Type: 
  Country: None (occurrence: None)
  Receive Date: 20040209
  Receipt Date: 20040202
  Transmission Date: 20041129
  Serious: Yes (Other)
  Sender: FDA-Public Use
  Company Number: 2004-02-0018

PATIENT
  Age: 58 Year
  Sex: Male

DRUGS (5)
  1. PEG-INTRON [Suspect]
     Indication: HEPATITIS C
     Dosage: 120 MCG QW* SUBCUTANEOUS
     Route: 058
     Dates: start: 20030126, end: 20031001
  2. PEG-INTRON [Suspect]
     Indication: HEPATITIS C
     Dosage: 120 MCG QW* SUBCUTANEOUS
     Route: 058
     Dates: start: 20031101, end: 20031201
  3. REBETOL [Suspect]
     Indication: HEPATITIS C
     Dosage: 1000 MG QD* ORAL
     Route: 048
     Dates: start: 20030126, end: 20031001
  4. REBETOL [Suspect]
     Indication: HEPATITIS C
     Dosage: 1000 MG QD* ORAL
     Route: 048
     Dates: start: 20031101, end: 20031201
  5. GELOCATIL [Concomitant]

REACTIONS (2)
  - EXANTHEM [None]
  - HEPATITIS C RNA POSITIVE [None]
